FAERS Safety Report 19890831 (Version 1)
Quarter: 2021Q3

REPORT INFORMATION
  Report Type: Spontaneous
  Country: FR (occurrence: FR)
  Receive Date: 20210927
  Receipt Date: 20210927
  Transmission Date: 20211014
  Serious: Yes (Other)
  Sender: FDA-Public Use
  Company Number: FR-ALLERGAN-2133089US

PATIENT
  Sex: Female

DRUGS (2)
  1. DALBAVANCIN HCL UNK [Suspect]
     Active Substance: DALBAVANCIN HYDROCHLORIDE
     Indication: INFECTION
     Dosage: 1500 MG
     Route: 042
     Dates: start: 20210819
  2. RIFABUTINE [Suspect]
     Active Substance: RIFABUTIN
     Indication: INFECTION
     Route: 048
     Dates: start: 20210727

REACTIONS (1)
  - Pancytopenia [Not Recovered/Not Resolved]
